FAERS Safety Report 8943180 (Version 1)
Quarter: 2012Q4

REPORT INFORMATION
  Report Type: 
  Country: GB (occurrence: GB)
  Receive Date: 20121204
  Receipt Date: 20121204
  Transmission Date: 20130627
  Serious: Yes (Other)
  Sender: FDA-Public Use
  Company Number: GB-RANBAXY-2012R1-62758

PATIENT
  Age: 78 Year
  Sex: Male

DRUGS (5)
  1. AMOXICILLIN [Suspect]
     Indication: URINARY TRACT INFECTION
     Dosage: UNK
     Route: 065
  2. TRIMETHOPRIM [Suspect]
     Indication: URINARY TRACT INFECTION
     Dosage: UNK
     Route: 065
     Dates: start: 201112
  3. BISOPROLOL [Concomitant]
     Indication: ATRIAL FIBRILLATION
     Dosage: UNK
     Route: 065
  4. LANSOPRAZOLE [Concomitant]
     Indication: PRODUCT USED FOR UNKNOWN INDICATION
     Dosage: UNK
     Route: 065
  5. WARFARIN [Concomitant]
     Indication: PRODUCT USED FOR UNKNOWN INDICATION
     Dosage: UNK
     Route: 065

REACTIONS (6)
  - Confusional state [Unknown]
  - Hallucination [Unknown]
  - Incontinence [Unknown]
  - Drug ineffective [Unknown]
  - Lethargy [Unknown]
  - Product quality issue [Unknown]
